FAERS Safety Report 9697620 (Version 2)
Quarter: 2014Q1

REPORT INFORMATION
  Report Type: Report from Study
  Country: CN (occurrence: CN)
  Receive Date: 20131120
  Receipt Date: 20140203
  Transmission Date: 20141002
  Serious: Yes (Death, Other)
  Sender: FDA-Public Use
  Company Number: CN-ASTELLAS-2013US012064

PATIENT
  Age: 58 Year
  Sex: Female

DRUGS (1)
  1. ERLOTINIB TABLET [Suspect]
     Indication: NON-SMALL CELL LUNG CANCER
     Dosage: 150 MG, UID/QD
     Route: 048
     Dates: start: 20130125

REACTIONS (8)
  - Dyspnoea [Fatal]
  - Thyroid neoplasm [Unknown]
  - Cholelithiasis [Unknown]
  - Asthma [Unknown]
  - Pleural effusion [Unknown]
  - Bronchitis [Unknown]
  - Metastases to lymph nodes [Unknown]
  - Metastases to bone [Unknown]
